FAERS Safety Report 20379555 (Version 1)
Quarter: 2022Q1

REPORT INFORMATION
  Report Type: 
  Country: None (occurrence: None)
  Receive Date: 20220126
  Receipt Date: 20220126
  Transmission Date: 20220423
  Serious: Yes (Other)
  Sender: FDA-Public Use
  Company Number: None

PATIENT
  Age: 63 Year
  Sex: Female

DRUGS (1)
  1. OLOPATADINE HYDROCHLORIDE [Suspect]
     Active Substance: OLOPATADINE HYDROCHLORIDE

REACTIONS (9)
  - Eye swelling [None]
  - Eye swelling [None]
  - Vision blurred [None]
  - Hypoaesthesia eye [None]
  - Vision blurred [None]
  - Eyelid myokymia [None]
  - Eye contusion [None]
  - Eye haematoma [Not Recovered/Not Resolved]
  - Central vision loss [Not Recovered/Not Resolved]
